FAERS Safety Report 16344686 (Version 2)
Quarter: 2019Q2

REPORT INFORMATION
  Report Type: Spontaneous
  Country: DE (occurrence: DE)
  Receive Date: 20190522
  Receipt Date: 20190611
  Transmission Date: 20190711
  Serious: Yes (Other)
  Sender: FDA-Public Use
  Company Number: PHHY2019DE116584

PATIENT
  Sex: Male

DRUGS (1)
  1. METFORMIN 1A PHARMA [Suspect]
     Active Substance: METFORMIN HYDROCHLORIDE
     Indication: FIBROMYALGIA
     Dosage: 1 DF, BID
     Route: 065
     Dates: start: 20190515

REACTIONS (4)
  - Somnolence [Unknown]
  - Angina pectoris [Unknown]
  - Dizziness [Unknown]
  - Product use in unapproved indication [Unknown]

NARRATIVE: CASE EVENT DATE: 201905
